FAERS Safety Report 22304625 (Version 5)
Quarter: 2023Q2

REPORT INFORMATION
  Report Type: Spontaneous
  Country: US (occurrence: US)
  Receive Date: 20230510
  Receipt Date: 20230606
  Transmission Date: 20230721
  Serious: Yes (Other)
  Sender: FDA-Public Use
  Company Number: US-ELI_LILLY_AND_COMPANY-US202305005807

PATIENT
  Age: 65 Year
  Sex: Female

DRUGS (2)
  1. FORTEO [Suspect]
     Active Substance: TERIPARATIDE
     Indication: Product used for unknown indication
     Dosage: UNK UNK, UNKNOWN
     Route: 058
     Dates: start: 20230506
  2. FORTEO [Suspect]
     Active Substance: TERIPARATIDE
     Indication: Product used for unknown indication
     Dosage: UNK UNK, UNKNOWN
     Route: 058
     Dates: start: 20230506

REACTIONS (19)
  - Hernia perforation [Unknown]
  - Product dose omission issue [Unknown]
  - Gastrointestinal viral infection [Recovered/Resolved]
  - Urinary tract infection [Recovered/Resolved]
  - Abdominal distension [Not Recovered/Not Resolved]
  - Abdominal rigidity [Not Recovered/Not Resolved]
  - Stress [Unknown]
  - Blood ketone body increased [Unknown]
  - Feeling abnormal [Unknown]
  - Hernia [Unknown]
  - Diaphragmatic hernia [Unknown]
  - Back pain [Not Recovered/Not Resolved]
  - Myalgia [Unknown]
  - Memory impairment [Unknown]
  - Pain [Not Recovered/Not Resolved]
  - Depression [Unknown]
  - Discomfort [Unknown]
  - Constipation [Not Recovered/Not Resolved]
  - Muscle spasms [Unknown]

NARRATIVE: CASE EVENT DATE: 20230506
